FAERS Safety Report 20400171 (Version 2)
Quarter: 2022Q1

REPORT INFORMATION
  Report Type: Spontaneous
  Country: US (occurrence: US)
  Receive Date: 20220131
  Receipt Date: 20220201
  Transmission Date: 20220423
  Serious: No
  Sender: FDA-Public Use
  Company Number: US-ABBVIE-21K-163-4058577-00

PATIENT
  Age: 49 Year
  Sex: Female
  Weight: 91.708 kg

DRUGS (20)
  1. HUMIRA [Suspect]
     Active Substance: ADALIMUMAB
     Indication: Psoriatic arthropathy
     Route: 058
     Dates: start: 20210601
  2. FLUOXETINE [Concomitant]
     Active Substance: FLUOXETINE HYDROCHLORIDE
     Indication: Anxiety
  3. FOLIC ACID [Concomitant]
     Active Substance: FOLIC ACID
     Indication: Psoriatic arthropathy
  4. LEFLUNOMIDE [Concomitant]
     Active Substance: LEFLUNOMIDE
     Indication: Psoriatic arthropathy
  5. TRIAMCINOLONE ACETONIDE [Concomitant]
     Active Substance: TRIAMCINOLONE ACETONIDE
     Indication: Psoriatic arthropathy
  6. VITAMIN C [Concomitant]
     Active Substance: ASCORBIC ACID
     Indication: Vitamin C decreased
  7. VITAMIN B COMPLEX [Concomitant]
     Active Substance: CYANOCOBALAMIN\DEXPANTHENOL\NIACINAMIDE\PYRIDOXINE HYDROCHLORIDE\RIBOFLAVIN 5^-PHOSPHATE SODIUM\THIA
     Indication: Vitamin B complex deficiency
  8. OMEGA 3,6,9 [Concomitant]
     Indication: Supplementation therapy
  9. VITAMIN D [Concomitant]
     Active Substance: VITAMIN D NOS
     Indication: Vitamin D decreased
  10. NAPROXEN [Concomitant]
     Active Substance: NAPROXEN
     Indication: Pain
  11. GLUCOSAMINE [Concomitant]
     Active Substance: GLUCOSAMINE
     Indication: Arthropathy
  12. ACETAMINOPHEN\HYDROCODONE [Concomitant]
     Active Substance: ACETAMINOPHEN\HYDROCODONE
     Indication: Pain
  13. ALBUTEROL SULFATE [Concomitant]
     Active Substance: ALBUTEROL SULFATE
     Indication: Asthma
  14. ALEGRA [Concomitant]
     Indication: Asthma
  15. EPINEPHRINE [Concomitant]
     Active Substance: EPINEPHRINE
     Indication: Arthropod sting
  16. FLONASE [Concomitant]
     Active Substance: FLUTICASONE PROPIONATE
     Indication: Asthma
  17. PEPCID [Concomitant]
     Active Substance: FAMOTIDINE
     Indication: Gastrooesophageal reflux disease
  18. PHENTERMINE [Concomitant]
     Active Substance: PHENTERMINE
     Indication: Weight decreased
  19. TOPAMAX [Concomitant]
     Active Substance: TOPIRAMATE
     Indication: Weight decreased
  20. METAMUCIL [Concomitant]
     Active Substance: PLANTAGO SEED
     Indication: Irritable bowel syndrome

REACTIONS (4)
  - Injection site warmth [Not Recovered/Not Resolved]
  - Therapeutic product effect incomplete [Not Recovered/Not Resolved]
  - Injection site pain [Not Recovered/Not Resolved]
  - Device issue [Unknown]

NARRATIVE: CASE EVENT DATE: 20210601
